FAERS Safety Report 7125693-X (Version None)
Quarter: 2010Q4

REPORT INFORMATION
  Report Type: 
  Country: None (occurrence: None)
  Receive Date: 20101129
  Receipt Date: 20101119
  Transmission Date: 20110411
  Serious: Yes (Death, Hospitalization)
  Sender: FDA-Public Use
  Company Number: A0887510A

PATIENT
  Age: 67 Year
  Sex: Female

DRUGS (2)
  1. PROMACTA [Suspect]
     Dosage: 25MG PER DAY
     Dates: start: 20100517, end: 20100627
  2. CORTICOSTEROIDS [Concomitant]

REACTIONS (13)
  - ASCITES [None]
  - BLOOD CREATININE INCREASED [None]
  - BLOOD UREA INCREASED [None]
  - FLUID OVERLOAD [None]
  - IDIOPATHIC THROMBOCYTOPENIC PURPURA [None]
  - MULTI-ORGAN FAILURE [None]
  - PLEURAL EFFUSION [None]
  - PNEUMONIA [None]
  - RENAL FAILURE ACUTE [None]
  - RENAL FAILURE CHRONIC [None]
  - SEPSIS [None]
  - SHOCK [None]
  - UPPER GASTROINTESTINAL HAEMORRHAGE [None]
